FAERS Safety Report 7281884-9 (Version None)
Quarter: 2011Q1

REPORT INFORMATION
  Report Type: 
  Country: None (occurrence: None)
  Receive Date: 20110208
  Receipt Date: 20110131
  Transmission Date: 20110831
  Serious: Yes (Life-Threatening, Hospitalization)
  Sender: FDA-Public Use
  Company Number: US-GENENTECH-313166

PATIENT
  Sex: Male
  Weight: 75 kg

DRUGS (1)
  1. RITUXAN [Suspect]
     Indication: CHRONIC LYMPHOCYTIC LEUKAEMIA
     Dosage: 656 MG, Q3W
     Route: 042
     Dates: start: 20100820, end: 20100913

REACTIONS (1)
  - SYSTEMIC INFLAMMATORY RESPONSE SYNDROME [None]
